FAERS Safety Report 23065447 (Version 1)
Quarter: 2023Q4

REPORT INFORMATION
  Report Type: Spontaneous
  Country: KR (occurrence: None)
  Receive Date: 20231013
  Receipt Date: 20231013
  Transmission Date: 20240109
  Serious: Yes (Death)
  Sender: FDA-Public Use
  Company Number: 2023A233719

PATIENT
  Sex: Male

DRUGS (4)
  1. IMFINZI [Suspect]
     Active Substance: DURVALUMAB
     Indication: Metastases to lymph nodes
     Dosage: 500.0MG UNKNOWN
     Dates: start: 20230627
  2. IMFINZI [Suspect]
     Active Substance: DURVALUMAB
     Indication: Metastases to lung
     Dosage: 500.0MG UNKNOWN
     Dates: start: 20230627
  3. CISPLATIN/GEMCITABINE [Concomitant]
     Indication: Metastases to lymph nodes
     Dates: start: 20230627
  4. CISPLATIN/GEMCITABINE [Concomitant]
     Indication: Metastases to lung
     Dates: start: 20230627

REACTIONS (1)
  - Malignant neoplasm progression [Fatal]
